FAERS Safety Report 6718707-X (Version None)
Quarter: 2010Q2

REPORT INFORMATION
  Report Type: 
  Country: None (occurrence: None)
  Receive Date: 20100507
  Receipt Date: 20100429
  Transmission Date: 20101027
  Serious: No
  Sender: FDA-Public Use
  Company Number: 011100

PATIENT
  Sex: Female

DRUGS (1)
  1. KEPPRA [Suspect]
     Dosage: 750 MG BID, 1000 MG, 2000 MG

REACTIONS (2)
  - COMPLEX PARTIAL SEIZURES [None]
  - PETIT MAL EPILEPSY [None]
